FAERS Safety Report 16711174 (Version 4)
Quarter: 2019Q3

REPORT INFORMATION
  Report Type: Spontaneous
  Country: US (occurrence: US)
  Receive Date: 20190816
  Receipt Date: 20190923
  Transmission Date: 20191004
  Serious: Yes (Hospitalization, Other)
  Sender: FDA-Public Use
  Company Number: US-SHIRE-US201925658

PATIENT
  Age: 41 Year
  Sex: Female

DRUGS (3)
  1. NATPARA (PARATHYROID HORMONE) [Suspect]
     Active Substance: PARATHYROID HORMONE
     Dosage: 200 MICROGRAM, 1X/DAY:QD
     Route: 058
     Dates: start: 20151105
  2. NATPARA (PARATHYROID HORMONE) [Suspect]
     Active Substance: PARATHYROID HORMONE
     Indication: HYPOPARATHYROIDISM
     Dosage: 100 MICROGRAM, 2X/DAY:BID
     Route: 065
     Dates: start: 20151105
  3. FORTEO [Concomitant]
     Active Substance: TERIPARATIDE
     Indication: HYPOPARATHYROIDISM

REACTIONS (6)
  - Product dose omission [Unknown]
  - Pulmonary embolism [Recovering/Resolving]
  - Product supply issue [Unknown]
  - Off label use [Unknown]
  - Blood calcium decreased [Recovering/Resolving]
  - Blood calcium abnormal [Unknown]

NARRATIVE: CASE EVENT DATE: 20190729
